FAERS Safety Report 5485289-2 (Version None)
Quarter: 2007Q4

REPORT INFORMATION
  Report Type: 
  Country: None (occurrence: None)
  Receive Date: 20071010
  Receipt Date: 20071010
  Transmission Date: 20080405
  Serious: Yes (Death, Other)
  Sender: FDA-Public Use
  Company Number: None

PATIENT
  Age: 61 Year
  Sex: Female
  Weight: 72.5755 kg

DRUGS (3)
  1. CYMBALTA [Suspect]
     Indication: DEPRESSION
     Dosage: 30MG PLUS 60MG MORNING / BEDTIME PO
     Route: 048
     Dates: start: 20050109, end: 20061211
  2. LUNESTA [Suspect]
     Indication: SLEEP DISORDER
     Dosage: 3MG BEDTIME PO
     Route: 048
     Dates: start: 20061205, end: 20061211
  3. XANAX [Concomitant]

REACTIONS (8)
  - ANOREXIA [None]
  - ANXIETY [None]
  - COMPLETED SUICIDE [None]
  - DEPRESSION [None]
  - DRUG INEFFECTIVE [None]
  - DRUG INTERACTION [None]
  - FEELING ABNORMAL [None]
  - GUN SHOT WOUND [None]
